FAERS Safety Report 8019444-4 (Version None)
Quarter: 2012Q1

REPORT INFORMATION
  Report Type: 
  Country: None (occurrence: None)
  Receive Date: 20120103
  Receipt Date: 20111228
  Transmission Date: 20120608
  Serious: Yes (Other)
  Sender: FDA-Public Use
  Company Number: PHEH2011US009968

PATIENT
  Sex: Female

DRUGS (2)
  1. REVLIMID [Concomitant]
     Indication: MYELODYSPLASTIC SYNDROME
     Dosage: 5 MG, DAILY
     Route: 048
     Dates: start: 20111125
  2. EXJADE [Suspect]
     Indication: IRON OVERLOAD
     Dosage: 2000 MG, QD
     Route: 048
     Dates: start: 20111116, end: 20111202

REACTIONS (3)
  - FAECES HARD [None]
  - RECTAL HAEMORRHAGE [None]
  - RASH [None]
